FAERS Safety Report 21540358 (Version 1)
Quarter: 2022Q4

REPORT INFORMATION
  Report Type: Spontaneous
  Country: CN (occurrence: CN)
  Receive Date: 20221102
  Receipt Date: 20221102
  Transmission Date: 20230113
  Serious: Yes (Hospitalization)
  Sender: FDA-Public Use
  Company Number: CN-TAKEDA-2022TUS079506

PATIENT
  Age: 77 Year
  Sex: Female
  Weight: 50 kg

DRUGS (4)
  1. ALBUMIN HUMAN [Suspect]
     Active Substance: ALBUMIN HUMAN
     Indication: Asthenia
     Dosage: 10 GRAM, QD
     Route: 041
     Dates: start: 20221014, end: 20221016
  2. ALBUMIN HUMAN [Suspect]
     Active Substance: ALBUMIN HUMAN
     Indication: Headache
  3. GANCICLOVIR [Suspect]
     Active Substance: GANCICLOVIR
     Indication: Asthenia
     Dosage: 0.25 GRAM, BID
     Route: 041
     Dates: start: 20221011, end: 20221014
  4. GANCICLOVIR [Suspect]
     Active Substance: GANCICLOVIR
     Indication: Headache

REACTIONS (2)
  - Purpura [Recovering/Resolving]
  - Hepatitis [Recovering/Resolving]

NARRATIVE: CASE EVENT DATE: 20221014
